FAERS Safety Report 8837276 (Version 1)
Quarter: 2012Q4

REPORT INFORMATION
  Report Type: 
  Country: TR (occurrence: TR)
  Receive Date: 20121012
  Receipt Date: 20121012
  Transmission Date: 20130627
  Serious: Yes (Hospitalization)
  Sender: FDA-Public Use
  Company Number: TR-MYLANLABS-2012S1020401

PATIENT
  Age: 45 Year
  Sex: Male

DRUGS (5)
  1. UNSPECIFIED INGREDIENT [Suspect]
     Dosage: up to 2 doses per day
     Route: 065
  2. GINSENG EXTRACT [Interacting]
     Dosage: up to 2 doses per day
     Route: 065
  3. UNSPECIFIED INGREDIENT [Interacting]
     Dosage: up to 2 doses per day
     Route: 065
  4. ASPIRIN [Interacting]
     Indication: ANTIPLATELET THERAPY
     Dosage: 100mg
     Route: 065
  5. CLOPIDOGREL [Interacting]
     Indication: ANTIPLATELET THERAPY
     Dosage: 75mg
     Route: 065

REACTIONS (2)
  - Thrombosis in device [Recovered/Resolved]
  - Drug interaction [Recovered/Resolved]
